FAERS Safety Report 4637900-3 (Version None)
Quarter: 2005Q2

REPORT INFORMATION
  Report Type: 
  Country: None (occurrence: None)
  Receive Date: 20050328
  Receipt Date: 20050206
  Transmission Date: 20051028
  Serious: No
  Sender: FDA-Public Use
  Company Number: USA050188830

PATIENT
  Age: 43 Year
  Sex: Female

DRUGS (7)
  1. STRATTERA [Suspect]
     Indication: ATTENTION DEFICIT/HYPERACTIVITY DISORDER
     Dates: start: 20041101
  2. PROZAC [Suspect]
  3. SEROQUEL [Concomitant]
  4. TRAZODONE [Concomitant]
  5. ALBUTEROL [Concomitant]
  6. AEROBID [Concomitant]
  7. CODEINE W/ PARACETAMOL [Concomitant]

REACTIONS (2)
  - DRUG INTERACTION [None]
  - URINE ANALYSIS ABNORMAL [None]
